FAERS Safety Report 17287207 (Version 1)
Quarter: 2020Q1

REPORT INFORMATION
  Report Type: Spontaneous
  Country: SE (occurrence: SE)
  Receive Date: 20200120
  Receipt Date: 20200120
  Transmission Date: 20200409
  Serious: Yes (Other)
  Sender: FDA-Public Use
  Company Number: SE-SAMSUNG BIOEPIS-SB-2020-00557

PATIENT
  Age: 40 Year
  Sex: Female
  Weight: 55 kg

DRUGS (3)
  1. NIFEREX [Concomitant]
     Indication: PRODUCT USED FOR UNKNOWN INDICATION
     Dosage: UNKNOWN
     Route: 065
     Dates: start: 201803
  2. BENEPALI [Suspect]
     Active Substance: ETANERCEPT
     Indication: RHEUMATOID ARTHRITIS
     Dosage: UNKNOWN
     Route: 065
     Dates: end: 20190223
  3. PREDNISOLON [Concomitant]
     Active Substance: PREDNISOLONE
     Indication: PRODUCT USED FOR UNKNOWN INDICATION
     Dosage: UNKNOWN
     Route: 065

REACTIONS (6)
  - Movement disorder [Recovering/Resolving]
  - Hypoaesthesia [Recovering/Resolving]
  - Dysarthria [Recovering/Resolving]
  - Demyelination [Unknown]
  - Muscular weakness [Recovering/Resolving]
  - Paraesthesia [Recovering/Resolving]

NARRATIVE: CASE EVENT DATE: 2017
